FAERS Safety Report 9217201 (Version 2)
Quarter: 2013Q2

REPORT INFORMATION
  Report Type: Spontaneous
  Country: DE (occurrence: DE)
  Receive Date: 20130408
  Receipt Date: 20130627
  Transmission Date: 20140414
  Serious: Yes (Hospitalization, Other)
  Sender: FDA-Public Use
  Company Number: DE-JNJFOC-20130401768

PATIENT
  Age: 86 Year
  Sex: Male
  Weight: 80 kg

DRUGS (5)
  1. XARELTO [Suspect]
     Indication: ATRIAL FIBRILLATION
     Route: 048
     Dates: start: 20130212, end: 20130304
  2. XARELTO [Suspect]
     Indication: CEREBROVASCULAR ACCIDENT PROPHYLAXIS
     Route: 048
     Dates: start: 20130212, end: 20130304
  3. CLOPIDOGREL [Concomitant]
     Indication: STENT PLACEMENT
     Route: 065
  4. ASS [Concomitant]
     Indication: STENT PLACEMENT
     Route: 065
  5. SPIRONOLACTON [Concomitant]
     Indication: CARDIAC FAILURE
     Route: 065

REACTIONS (3)
  - Leukocytoclastic vasculitis [Recovering/Resolving]
  - Hyperthyroidism [Unknown]
  - Blood creatinine abnormal [Unknown]
